FAERS Safety Report 9565203 (Version 2)
Quarter: 2013Q4

REPORT INFORMATION
  Report Type: Spontaneous
  Country: JP (occurrence: JP)
  Receive Date: 20130930
  Receipt Date: 20131108
  Transmission Date: 20140711
  Serious: Yes (Death, Other)
  Sender: FDA-Public Use
  Company Number: JP-PFIZER INC-2013279320

PATIENT
  Age: 61 Year
  Sex: Female

DRUGS (13)
  1. BANAN [Suspect]
     Indication: INFECTION PROPHYLAXIS
     Dosage: 100 MG, 1X/DAY IN THE MORNING AFTER MEAL
     Route: 048
     Dates: start: 20130614
  2. FERON [Suspect]
     Dosage: 3000000 IU, 1X/DAY
     Route: 042
     Dates: start: 20130615, end: 20130713
  3. SEISHOKU [Suspect]
     Dosage: 100 ML, 2X/DAY
     Route: 041
     Dates: start: 20130711, end: 20130726
  4. ISOTONIC SODIUM CHLORIDE SOLUTION [Suspect]
     Dosage: 100 ML, 3X/DAY
     Route: 041
     Dates: start: 20130706, end: 20130719
  5. NEXIUM [Concomitant]
     Indication: PROPHYLAXIS AGAINST GASTROINTESTINAL ULCER
     Dosage: UNK
  6. ALESION [Concomitant]
     Indication: RASH
     Dosage: 20 MG, BEFORE BEDTIME
     Dates: start: 20130704, end: 20130812
  7. VOLTAREN [Concomitant]
     Indication: PYREXIA
     Dosage: 25 MG, UNK
     Dates: start: 20130627, end: 20130812
  8. PORTOLAC [Concomitant]
     Indication: HEPATIC ENCEPHALOPATHY
     Dosage: 6 G TWICE A DAY, IN THE MORNING AND EVENING (AFTER MEAL)
     Dates: start: 20130616, end: 20130812
  9. PROMAC D [Concomitant]
     Indication: PROPHYLAXIS AGAINST GASTROINTESTINAL ULCER
     Dosage: 75 MG TWICE A DAY, IN THE MORNING AND EVENING (AFTER MEAL)
     Dates: start: 20130624, end: 20130812
  10. BARACLUDE [Concomitant]
     Indication: HEPATITIS B
     Dosage: 1 MG ONCE A DAY, FASTING STATE
     Dates: start: 20130611, end: 20130812
  11. DENOSINE [Concomitant]
     Indication: CYTOMEGALOVIRUS INFECTION
     Dosage: 300 MG, 2X/DAY
     Route: 041
     Dates: start: 20130711, end: 20130726
  12. ZOSYN [Concomitant]
     Dosage: 4.5 G, 3X/DAY
     Route: 041
     Dates: start: 20130706, end: 20130719
  13. FUTHAN [Concomitant]
     Dosage: 200 MG, 1X/DAY
     Route: 041
     Dates: start: 20130610, end: 20130705

REACTIONS (2)
  - Interstitial lung disease [Fatal]
  - Rash [Recovering/Resolving]
